FAERS Safety Report 9355163 (Version 1)
Quarter: 2013Q2

REPORT INFORMATION
  Report Type: Spontaneous
  Country: US (occurrence: US)
  Receive Date: 20130619
  Receipt Date: 20130619
  Transmission Date: 20140414
  Serious: Yes (Other)
  Sender: FDA-Public Use
  Company Number: PHEH2013US012598

PATIENT
  Sex: Female

DRUGS (8)
  1. TASIGNA [Suspect]
  2. D3 [Suspect]
  3. ZOCOR [Concomitant]
  4. CARVEDILOL [Concomitant]
  5. AMLODIPINE [Concomitant]
  6. MULTI-VIT [Concomitant]
  7. FISH OIL [Concomitant]
  8. COQ10 [Concomitant]

REACTIONS (3)
  - Paraesthesia [Unknown]
  - Sleep disorder [Unknown]
  - Musculoskeletal discomfort [Unknown]
